FAERS Safety Report 25252047 (Version 1)
Quarter: 2025Q2

REPORT INFORMATION
  Report Type: Spontaneous
  Country: FR (occurrence: FR)
  Receive Date: 20250429
  Receipt Date: 20250429
  Transmission Date: 20250716
  Serious: Yes (Hospitalization)
  Sender: MYLAN
  Company Number: None

PATIENT
  Age: 40 Year
  Sex: Female
  Weight: 69 kg

DRUGS (16)
  1. CITALOPRAM [Suspect]
     Active Substance: CITALOPRAM
     Indication: Bipolar disorder
     Dosage: 40 MILLIGRAM, QD
     Dates: start: 20240627, end: 20250328
  2. CITALOPRAM [Suspect]
     Active Substance: CITALOPRAM
     Dosage: 40 MILLIGRAM, QD
     Route: 065
     Dates: start: 20240627, end: 20250328
  3. CITALOPRAM [Suspect]
     Active Substance: CITALOPRAM
     Dosage: 40 MILLIGRAM, QD
     Route: 065
     Dates: start: 20240627, end: 20250328
  4. CITALOPRAM [Suspect]
     Active Substance: CITALOPRAM
     Dosage: 40 MILLIGRAM, QD
     Dates: start: 20240627, end: 20250328
  5. LAMOTRIGINE [Suspect]
     Active Substance: LAMOTRIGINE
     Indication: Bipolar disorder
     Dosage: 400 MILLIGRAM, QD
     Dates: start: 20240627, end: 20250328
  6. LAMOTRIGINE [Suspect]
     Active Substance: LAMOTRIGINE
     Dosage: 400 MILLIGRAM, QD
     Route: 065
     Dates: start: 20240627, end: 20250328
  7. LAMOTRIGINE [Suspect]
     Active Substance: LAMOTRIGINE
     Dosage: 400 MILLIGRAM, QD
     Route: 065
     Dates: start: 20240627, end: 20250328
  8. LAMOTRIGINE [Suspect]
     Active Substance: LAMOTRIGINE
     Dosage: 400 MILLIGRAM, QD
     Dates: start: 20240627, end: 20250328
  9. OXAZEPAM [Suspect]
     Active Substance: OXAZEPAM
     Indication: Bipolar disorder
     Dosage: 50 MILLIGRAM, QD
     Dates: start: 20240627, end: 20250328
  10. OXAZEPAM [Suspect]
     Active Substance: OXAZEPAM
     Dosage: 50 MILLIGRAM, QD
     Route: 065
     Dates: start: 20240627, end: 20250328
  11. OXAZEPAM [Suspect]
     Active Substance: OXAZEPAM
     Dosage: 50 MILLIGRAM, QD
     Route: 065
     Dates: start: 20240627, end: 20250328
  12. OXAZEPAM [Suspect]
     Active Substance: OXAZEPAM
     Dosage: 50 MILLIGRAM, QD
     Dates: start: 20240627, end: 20250328
  13. LEVOTHYROXINE [Suspect]
     Active Substance: LEVOTHYROXINE
     Indication: Bipolar disorder
     Dosage: 75 MICROGRAM, QD
     Dates: start: 20240627, end: 20250328
  14. LEVOTHYROXINE [Suspect]
     Active Substance: LEVOTHYROXINE
     Dosage: 75 MICROGRAM, QD
     Route: 065
     Dates: start: 20240627, end: 20250328
  15. LEVOTHYROXINE [Suspect]
     Active Substance: LEVOTHYROXINE
     Dosage: 75 MICROGRAM, QD
     Route: 065
     Dates: start: 20240627, end: 20250328
  16. LEVOTHYROXINE [Suspect]
     Active Substance: LEVOTHYROXINE
     Dosage: 75 MICROGRAM, QD
     Dates: start: 20240627, end: 20250328

REACTIONS (3)
  - Tachypnoea [Not Recovered/Not Resolved]
  - Agitation [Not Recovered/Not Resolved]
  - Maternal exposure during pregnancy [Recovered/Resolved]

NARRATIVE: CASE EVENT DATE: 20250329
